FAERS Safety Report 7957837-1 (Version None)
Quarter: 2011Q4

REPORT INFORMATION
  Report Type: 
  Country: None (occurrence: None)
  Receive Date: 20111205
  Receipt Date: 20111125
  Transmission Date: 20120403
  Serious: Yes (Hospitalization, Other)
  Sender: FDA-Public Use
  Company Number: US-BAYER-2011-011477

PATIENT
  Age: 37 Year
  Sex: Female
  Weight: 74 kg

DRUGS (19)
  1. ZANTAC [Concomitant]
     Dosage: UNK
     Dates: end: 20091208
  2. HYDROXYCHLOROQUINE SULFATE [Concomitant]
     Dosage: 200 MG, QD
     Route: 048
     Dates: start: 20091123, end: 20091222
  3. AMBIEN [Concomitant]
     Dosage: 10 MG, HS
     Route: 048
     Dates: start: 20091208, end: 20100113
  4. ADVAIR DISKUS 100/50 [Concomitant]
     Dosage: 500-50 MCG/DOSE
     Route: 045
     Dates: end: 20091208
  5. PROZAC [Concomitant]
     Dosage: 10 MG, QD
     Route: 048
     Dates: start: 20090121, end: 20091210
  6. DROSPIRENONE AND ETHINYL ESTRADIOL [Suspect]
  7. PSEUDOEPHEDRINE HCL [Concomitant]
     Dosage: UNK UNK, QD
     Route: 048
     Dates: end: 20091230
  8. FOLIC ACID [Concomitant]
     Dosage: 1 MG, QD
     Route: 048
     Dates: start: 20091021, end: 20100113
  9. YASMIN [Suspect]
     Indication: PREMENSTRUAL SYNDROME
  10. DROSPIRENONE AND ETHINYL ESTRADIOL [Suspect]
     Indication: ACNE
     Dosage: UNK
     Dates: start: 20090101, end: 20090601
  11. PREDNISOLONE [Concomitant]
     Dosage: 4 MG, QD
     Dates: start: 20100112, end: 20100129
  12. YASMIN [Suspect]
  13. YASMIN [Suspect]
     Indication: ACNE
     Dosage: UNK
     Dates: start: 20090101, end: 20090601
  14. EFFEXOR [Concomitant]
     Dosage: 75 MG, BID
     Route: 048
     Dates: end: 20091208
  15. FLEXERIL [Concomitant]
     Dosage: 10 MG QHS, 1 TABLET 3 TIMES, DAILY AS NEEDED
     Dates: start: 20090908, end: 20091230
  16. DROSPIRENONE AND ETHINYL ESTRADIOL [Suspect]
     Indication: PREMENSTRUAL SYNDROME
  17. LYRICA [Concomitant]
     Indication: PARAESTHESIA
     Dosage: 25 MG QAM, 50 MG QHS
     Route: 048
     Dates: start: 20091023, end: 20100113
  18. IMURAN [Concomitant]
     Dosage: 50 MG, BID
     Route: 048
     Dates: start: 20100129
  19. AZELAIC ACID [Concomitant]
     Dosage: 20% CREAM, BID
     Route: 061
     Dates: start: 20090212, end: 20100213

REACTIONS (8)
  - GASTRIC DISORDER [None]
  - MENTAL DISORDER [None]
  - COGNITIVE DISORDER [None]
  - PAIN [None]
  - GALLBLADDER INJURY [None]
  - DEPRESSION [None]
  - ANXIETY [None]
  - CHOLECYSTITIS CHRONIC [None]
